FAERS Safety Report 22074929 (Version 1)
Quarter: 2023Q1

REPORT INFORMATION
  Report Type: Spontaneous
  Country: US (occurrence: US)
  Receive Date: 20230308
  Receipt Date: 20230308
  Transmission Date: 20230417
  Serious: No
  Sender: FDA-Public Use
  Company Number: US-SA-SAC20230306001109

PATIENT
  Sex: Female

DRUGS (1)
  1. DUPIXENT [Suspect]
     Active Substance: DUPILUMAB
     Indication: Hereditary alpha tryptasaemia
     Dosage: 300 MG, FREQUENCY: OTHER
     Route: 058
     Dates: end: 202301

REACTIONS (1)
  - Drug ineffective for unapproved indication [Unknown]
